FAERS Safety Report 7878332 (Version 4)
Quarter: 2012Q4

REPORT INFORMATION
  Report Type: 
  Country: JP (occurrence: JP)
  Receive Date: 20110330
  Receipt Date: 20121112
  Transmission Date: 20130627
  Serious: Yes (Hospitalization, Other)
  Sender: FDA-Public Use
  Company Number: JP-CELGENEUS-087-21880-10100390

PATIENT
  Age: 51 Year
  Sex: Female

DRUGS (9)
  1. REVLIMID [Suspect]
     Indication: MULTIPLE MYELOMA
     Dosage: 7.5 Milligram
     Route: 048
     Dates: start: 20100917, end: 20101007
  2. LENADEX [Suspect]
     Indication: MULTIPLE MYELOMA
     Dosage: 40 Milligram
     Route: 048
     Dates: start: 20100917, end: 20101001
  3. BAYASPIRIN [Concomitant]
     Indication: PROPHYLAXIS
     Dosage: 100 Milligram
     Route: 048
     Dates: start: 20100917, end: 20101007
  4. BAKTAR [Concomitant]
     Indication: MULTIPLE MYELOMA
     Dosage: .5 Gram
     Route: 048
     Dates: start: 20100917, end: 20101007
  5. TAKEPRON [Concomitant]
     Indication: PROPHYLAXIS
     Dosage: 15 Milligram
     Route: 048
     Dates: start: 20100917, end: 20101007
  6. DIFLUCAN [Concomitant]
     Indication: PROPHYLAXIS
     Dosage: 100 Milligram
     Route: 048
     Dates: start: 20100917, end: 20101007
  7. LASIX [Concomitant]
     Indication: MULTIPLE MYELOMA
     Dosage: 10 Milligram
     Route: 048
     Dates: start: 20100917, end: 20101007
  8. PREDONINE [Concomitant]
     Indication: MULTIPLE MYELOMA
     Dosage: 5 Milligram
     Route: 048
     Dates: start: 20100917, end: 20101007
  9. BORTEZOMIB [Concomitant]
     Indication: DRUG USE FOR UNKNOWN INDICATION
     Route: 065

REACTIONS (5)
  - Posterior reversible encephalopathy syndrome [Recovered/Resolved]
  - Femoral neck fracture [Unknown]
  - Renal failure [Recovered/Resolved]
  - Tumour lysis syndrome [Recovered/Resolved]
  - Thrombocytopenia [Not Recovered/Not Resolved]
